FAERS Safety Report 15934252 (Version 1)
Quarter: 2019Q1

REPORT INFORMATION
  Report Type: Spontaneous
  Country: US (occurrence: US)
  Receive Date: 20190207
  Receipt Date: 20190207
  Transmission Date: 20190417
  Serious: No
  Sender: FDA-Public Use
  Company Number: US-PFIZER INC-2019044218

PATIENT
  Age: 70 Year
  Sex: Male

DRUGS (3)
  1. MORPHINE SULFATE. [Suspect]
     Active Substance: MORPHINE SULFATE
     Dosage: UNK
  2. PSEUDOEPHEDRINE SULFATE [Suspect]
     Active Substance: PSEUDOEPHEDRINE SULFATE
     Dosage: UNK
  3. LORATADINE. [Suspect]
     Active Substance: LORATADINE
     Dosage: UNK

REACTIONS (2)
  - Drug hypersensitivity [Unknown]
  - Rash [Unknown]
